FAERS Safety Report 4381597-7 (Version None)
Quarter: 2004Q2

REPORT INFORMATION
  Report Type: 
  Country: None (occurrence: None)
  Receive Date: 20040615
  Receipt Date: 20040603
  Transmission Date: 20050107
  Serious: Yes (Death)
  Sender: FDA-Public Use
  Company Number: 2004-DE-03185GD

PATIENT
  Age: 28 Year
  Sex: Female
  Weight: 36.7 kg

DRUGS (3)
  1. CYCLOPHOSPHAMIDE [Suspect]
     Indication: TAKAYASU'S ARTERITIS
  2. INFLIXIMAB (INFLIXIMAB) [Suspect]
     Indication: TAKAYASU'S ARTERITIS
  3. STEROIDS [Suspect]
     Indication: TAKAYASU'S ARTERITIS
     Dosage: HIGH-DOSE

REACTIONS (19)
  - ARTERIAL OCCLUSIVE DISEASE [None]
  - GASTRIC PERFORATION [None]
  - GASTROINTESTINAL NECROSIS [None]
  - GASTROINTESTINAL ULCER [None]
  - GENERAL PHYSICAL HEALTH DETERIORATION [None]
  - HEPATIC INFARCTION [None]
  - HEPATIC NECROSIS [None]
  - INTESTINAL INFARCTION [None]
  - LIVEDO RETICULARIS [None]
  - MULTI-ORGAN FAILURE [None]
  - NECROSIS ISCHAEMIC [None]
  - NEUROFIBROMATOSIS [None]
  - NUCLEAR MAGNETIC RESONANCE IMAGING ABNORMAL [None]
  - OSTEOLYSIS [None]
  - SEPSIS [None]
  - SKIN ULCER [None]
  - SPLENIC INFARCTION [None]
  - TAKAYASU'S ARTERITIS [None]
  - WEIGHT DECREASED [None]
